FAERS Safety Report 16855477 (Version 1)
Quarter: 2019Q3

REPORT INFORMATION
  Report Type: Spontaneous
  Country: GB (occurrence: DE)
  Receive Date: 20190926
  Receipt Date: 20190926
  Transmission Date: 20191005
  Serious: Yes (Hospitalization, Disabling, Other)
  Sender: FDA-Public Use
  Company Number: DE-BAYER-2019-091358

PATIENT
  Age: 53 Year
  Sex: Female
  Weight: 138 kg

DRUGS (9)
  1. FURADANTIN [Suspect]
     Active Substance: NITROFURANTOIN
  2. LEVOFLOXACIN. [Suspect]
     Active Substance: LEVOFLOXACIN
  3. IODINE. [Concomitant]
     Active Substance: IODINE
     Indication: HYPOTHYROIDISM
  4. CIPROFLOXACIN MONOHYDROCHLORIDE [Suspect]
     Active Substance: CIPROFLOXACIN
     Dosage: 3 X 500
     Route: 048
  5. CEFACLOR. [Concomitant]
     Active Substance: CEFACLOR
  6. NORFLOXACIN [Suspect]
     Active Substance: NORFLOXACIN
  7. MOXIFLOXACIN. [Concomitant]
     Active Substance: MOXIFLOXACIN
  8. NITROFURANTOIN. [Concomitant]
     Active Substance: NITROFURANTOIN
  9. CEFUROXIME. [Concomitant]
     Active Substance: CEFUROXIME

REACTIONS (15)
  - Polyneuropathy [Recovered/Resolved with Sequelae]
  - Nerve injury [Unknown]
  - Fatigue [Recovered/Resolved with Sequelae]
  - Mobility decreased [Recovered/Resolved with Sequelae]
  - Asthenia [Recovered/Resolved with Sequelae]
  - Depression [Recovered/Resolved with Sequelae]
  - Anxiety [Recovered/Resolved with Sequelae]
  - Hypotonia [Recovered/Resolved with Sequelae]
  - Tendonitis [Recovered/Resolved with Sequelae]
  - Myalgia [Recovered/Resolved with Sequelae]
  - Impaired work ability [Not Recovered/Not Resolved]
  - Hypoaesthesia [Recovered/Resolved with Sequelae]
  - Dizziness [Recovered/Resolved with Sequelae]
  - Pain [Recovered/Resolved with Sequelae]
  - Disturbance in attention [Recovered/Resolved with Sequelae]

NARRATIVE: CASE EVENT DATE: 20140312
